FAERS Safety Report 14005579 (Version 3)
Quarter: 2018Q2

REPORT INFORMATION
  Report Type: Other
  Country: US (occurrence: US)
  Receive Date: 20170923
  Receipt Date: 20180422
  Transmission Date: 20180711
  Serious: No
  Sender: FDA-Public Use
  Company Number: US-APOTEX-2017AP015163

PATIENT
  Age: 45 Year
  Sex: Male

DRUGS (1)
  1. CLARISPRAY NASAL ALLERGY [Suspect]
     Active Substance: FLUTICASONE PROPIONATE
     Indication: HYPERSENSITIVITY
     Route: 045

REACTIONS (1)
  - Sinusitis [Unknown]
